FAERS Safety Report 7515343-2 (Version None)
Quarter: 2011Q2

REPORT INFORMATION
  Report Type: 
  Country: None (occurrence: None)
  Receive Date: 20110601
  Receipt Date: 20100618
  Transmission Date: 20111010
  Serious: Yes (Other)
  Sender: FDA-Public Use
  Company Number: US-PFIZER INC-2010067135

PATIENT
  Age: 27 Year
  Sex: Male
  Weight: 140.59 kg

DRUGS (3)
  1. CHANTIX [Suspect]
     Indication: SMOKING CESSATION THERAPY
     Dosage: UNK MG, UNK
     Route: 048
     Dates: start: 20100421
  2. LAMICTAL [Concomitant]
     Dosage: 100 MG, DAILY
  3. ADDERALL 10 [Concomitant]
     Dosage: 30 MG, DAILY

REACTIONS (7)
  - AGITATION [None]
  - DIZZINESS [None]
  - NAUSEA [None]
  - DISSOCIATION [None]
  - HYPOAESTHESIA [None]
  - ANXIETY [None]
  - ANGER [None]
